FAERS Safety Report 23266450 (Version 1)
Quarter: 2023Q4

REPORT INFORMATION
  Report Type: Spontaneous
  Country: US (occurrence: None)
  Receive Date: 20231205
  Receipt Date: 20231205
  Transmission Date: 20240110
  Serious: Yes (Hospitalization)
  Sender: FDA-Public Use
  Company Number: None

PATIENT
  Sex: Female

DRUGS (3)
  1. BENLYSTA [Suspect]
     Active Substance: BELIMUMAB
     Indication: Systemic lupus erythematosus
     Dosage: 200 MG/ML SUBCUTANEOUS??INJECT 1 PEN UNDER THE SKIN(SUBCUTANEOUS INJECTION) ONCE WEEKLY?
     Route: 058
     Dates: start: 20231011
  2. BENLYSTA [Suspect]
     Active Substance: BELIMUMAB
     Dosage: OTHER QUANTITY : 1 PEN;?FREQUENCY : WEEKLY;?
     Route: 058
  3. MIRALAX POW [Concomitant]

REACTIONS (2)
  - Therapy interrupted [None]
  - Drug ineffective [None]
